FAERS Safety Report 6729968-5 (Version None)
Quarter: 2010Q2

REPORT INFORMATION
  Report Type: 
  Country: None (occurrence: None)
  Receive Date: 20100513
  Receipt Date: 20100429
  Transmission Date: 20101027
  Serious: Yes (Hospitalization)
  Sender: FDA-Public Use
  Company Number: 1-22439566

PATIENT
  Age: 59 Year
  Sex: Female

DRUGS (1)
  1. DOXYPALU (MANUFACTURER UNKNOWN) [Suspect]
     Indication: MALARIA PROPHYLAXIS
     Dosage: 100 MG DAILY, ORAL
     Route: 048

REACTIONS (8)
  - CYTOLYTIC HEPATITIS [None]
  - DIABETES MELLITUS [None]
  - DIARRHOEA [None]
  - DRUG RASH WITH EOSINOPHILIA AND SYSTEMIC SYMPTOMS [None]
  - INFECTION [None]
  - MONONUCLEOSIS SYNDROME [None]
  - PANCREATIC DISORDER [None]
  - VOMITING [None]
